FAERS Safety Report 8970978 (Version 2)
Quarter: 2014Q3

REPORT INFORMATION
  Report Type: Spontaneous
  Country: US (occurrence: US)
  Receive Date: 20121218
  Receipt Date: 20140908
  Transmission Date: 20150326
  Serious: No
  Sender: FDA-Public Use
  Company Number: US-BRISTOL-MYERS SQUIBB COMPANY-17013038

PATIENT
  Age: 88 Year
  Sex: Female

DRUGS (3)
  1. NAVANE [Suspect]
     Active Substance: THIOTHIXENE
  2. XANAX [Suspect]
     Active Substance: ALPRAZOLAM
  3. ABILIFY [Suspect]
     Active Substance: ARIPIPRAZOLE

REACTIONS (6)
  - Eye movement disorder [Unknown]
  - Hot flush [Unknown]
  - Feeling abnormal [Unknown]
  - Muscle twitching [Unknown]
  - Tardive dyskinesia [Unknown]
  - Alopecia [Unknown]
